FAERS Safety Report 10759234 (Version 5)
Quarter: 2015Q4

REPORT INFORMATION
  Report Type: Spontaneous
  Country: US (occurrence: US)
  Receive Date: 20150203
  Receipt Date: 20151209
  Transmission Date: 20160304
  Serious: Yes (Hospitalization)
  Sender: FDA-Public Use
  Company Number: US-PFIZER INC-2015042615

PATIENT
  Age: 49 Year
  Sex: Female
  Weight: 82 kg

DRUGS (19)
  1. PRISTIQ EXTENDED RELEASE [Suspect]
     Active Substance: DESVENLAFAXINE SUCCINATE
     Indication: MENTAL DISORDER
     Dosage: 100 MG, ONE TIME IN THE MORNING
     Route: 048
  2. CARBAMAZEPINE XR [Concomitant]
     Dosage: 200 MG, 2X/DAY (ONE TABLET BY MOUTH TWICE PER DAY)
     Route: 048
  3. HYDROCHLOROTHIAZIDE. [Concomitant]
     Active Substance: HYDROCHLOROTHIAZIDE
     Indication: BLOOD PRESSURE INCREASED
     Dosage: 25 MG, 1X/DAY (IN MORNING)
     Route: 048
  4. METHOCARBAMOL. [Concomitant]
     Active Substance: METHOCARBAMOL
     Indication: BACK PAIN
  5. METHOCARBAMOL. [Concomitant]
     Active Substance: METHOCARBAMOL
     Indication: MUSCLE RELAXANT THERAPY
     Dosage: 750 MG, EVERY 6 HOURS
     Route: 048
  6. PROAIR HFA [Concomitant]
     Active Substance: ALBUTEROL SULFATE
     Indication: ASTHMA
     Dosage: 2 PUFFS, EVERY 4-6 HOURS AS NEEDED
     Route: 055
  7. FISH OIL/OMEGA-3 TRIGLYCERIDES/TOCOPHEROL [Concomitant]
     Dosage: 1000 MG / 300 MG OF OMEGA, ONE PER DAY
  8. IBUPROFEN. [Concomitant]
     Active Substance: IBUPROFEN
     Indication: PAIN
     Dosage: 800 MG, EVERY 8 HOURS
     Route: 048
  9. PRISTIQ EXTENDED RELEASE [Suspect]
     Active Substance: DESVENLAFAXINE SUCCINATE
     Indication: DEPRESSION
     Dosage: 100 MG ONCE A DAY EVERY MORNING
     Route: 048
     Dates: start: 2011
  10. VITAMIN D3 [Concomitant]
     Active Substance: CHOLECALCIFEROL
     Indication: BONE DISORDER
     Dosage: 1000 IU, 1X/DAY
     Route: 048
  11. CALCIUM MAGNESIUM ZINC [Concomitant]
     Active Substance: CALCIUM\MAGNESIUM\ZINC
     Dosage: 200 IU, 1X/DAY
  12. ALPRAZOLAM. [Concomitant]
     Active Substance: ALPRAZOLAM
     Indication: PANIC ATTACK
     Dosage: 2 MG, 2X/DAY (2 MG IN MORNING AND 2 MG AT NIGHT)
     Route: 048
  13. ALPRAZOLAM. [Concomitant]
     Active Substance: ALPRAZOLAM
     Indication: INSOMNIA
  14. OMEPRAZOLE DR [Concomitant]
     Active Substance: OMEPRAZOLE
     Indication: PAIN
     Dosage: 20 MG, 1X/DAY
     Route: 048
  15. METHOCARBAMOL. [Concomitant]
     Active Substance: METHOCARBAMOL
     Indication: NECK PAIN
  16. CHROMIUM PICOLINATE [Concomitant]
     Active Substance: CHROMIUM PICOLINATE
     Dosage: 1000 ?G, 1X/DAY
  17. POTASSIUM GLUCONATE [Concomitant]
     Active Substance: POTASSIUM GLUCONATE
     Dosage: 595 MG, 1X/DAY
  18. BUPROPION XL [Concomitant]
     Active Substance: BUPROPION
     Dosage: 300 MG, EVERY MORNING
     Route: 048
  19. MELOXICAM. [Concomitant]
     Active Substance: MELOXICAM
     Dosage: 15 MG, 1X/DAY (ONE TIME IN THE MORNING)
     Route: 048

REACTIONS (16)
  - Pain [Not Recovered/Not Resolved]
  - Depression [Unknown]
  - Nervousness [Unknown]
  - Suicide attempt [Unknown]
  - Suicidal ideation [Unknown]
  - Speech disorder [Not Recovered/Not Resolved]
  - Chest pain [Not Recovered/Not Resolved]
  - Anxiety disorder [Unknown]
  - Dyspnoea [Not Recovered/Not Resolved]
  - Condition aggravated [Not Recovered/Not Resolved]
  - Thinking abnormal [Unknown]
  - Back pain [Not Recovered/Not Resolved]
  - Neck pain [Not Recovered/Not Resolved]
  - Post-traumatic stress disorder [Unknown]
  - Activities of daily living impaired [Unknown]
  - Panic attack [Unknown]

NARRATIVE: CASE EVENT DATE: 2011
